FAERS Safety Report 6439853-4 (Version None)
Quarter: 2009Q4

REPORT INFORMATION
  Report Type: 
  Country: None (occurrence: None)
  Receive Date: 20091113
  Receipt Date: 20091105
  Transmission Date: 20100525
  Serious: Yes (Disabling)
  Sender: FDA-Public Use
  Company Number: JP-BRISTOL-MYERS SQUIBB COMPANY-14812127

PATIENT
  Age: 72 Year
  Sex: Male
  Weight: 63 kg

DRUGS (5)
  1. ERBITUX [Suspect]
     Indication: COLON CANCER
     Dosage: 400MG(1/1WK,13NOV-29DEC08(46DAYS);320MG(1/1WK,27JAN09-ONG) RECENT INF (23 RD) ON 11-JUN-2009
     Route: 042
     Dates: start: 20081106, end: 20081106
  2. IRINOTECAN HCL [Suspect]
     Indication: COLON CANCER
     Dosage: SKIPPED ON 20+27APR2009; RECENT 13 TH INF ON 04-JUN-2009.
     Route: 042
     Dates: start: 20081106
  3. FLUOROURACIL [Suspect]
     Indication: COLON CANCER
     Dosage: IV DRIP:3800MG FROM 6NOV08,IV BOLUS:640MG FROM 20AUG09, BOTH 1/2WK; IV DRIP-SKIPPED ON 20+27APR09.
     Route: 042
     Dates: start: 20081106
  4. LEUCOVORIN [Suspect]
     Indication: COLON CANCER
     Dosage: SKIPPPED ON 20+27APR09. RECENT 13 TH INF ON 04-JUN-2009.
     Route: 042
     Dates: start: 20081106
  5. DECADRON [Concomitant]
     Indication: PREMEDICATION
     Route: 042
     Dates: start: 20081106

REACTIONS (3)
  - ACNE [None]
  - DECREASED APPETITE [None]
  - HYPOAESTHESIA ORAL [None]
